FAERS Safety Report 8764705 (Version 1)
Quarter: 2012Q4

REPORT INFORMATION
  Report Type: 
  Country: DE (occurrence: DE)
  Receive Date: 20120831
  Receipt Date: 20120831
  Transmission Date: 20130627
  Serious: Yes (Hospitalization)
  Sender: FDA-Public Use
  Company Number: DE-NOVOPROD-358813

PATIENT
  Age: 74 Year
  Sex: Male
  Weight: 110 kg

DRUGS (4)
  1. VICTOZA [Suspect]
     Indication: TYPE 2 DIABETES MELLITUS
     Dosage: 1.2 (units unspecified)
     Route: 058
     Dates: start: 20120530
  2. LEVEMIR [Suspect]
     Indication: TYPE 2 DIABETES MELLITUS
     Dosage: 16 U, qd
     Route: 065
     Dates: start: 20120625
  3. TRIAMTEREEN [Concomitant]
     Indication: PRODUCT USED FOR UNKNOWN INDICATION
  4. DOXAZOL [Concomitant]
     Indication: PRODUCT USED FOR UNKNOWN INDICATION

REACTIONS (1)
  - Optic ischaemic neuropathy [Recovered/Resolved with Sequelae]
